FAERS Safety Report 21711480 (Version 3)
Quarter: 2023Q1

REPORT INFORMATION
  Report Type: Spontaneous
  Country: US (occurrence: US)
  Receive Date: 20221212
  Receipt Date: 20230321
  Transmission Date: 20230417
  Serious: No
  Sender: FDA-Public Use
  Company Number: US-BIOGEN-2022BI01173856

PATIENT
  Age: 57 Year
  Sex: Female

DRUGS (1)
  1. TYSABRI [Suspect]
     Active Substance: NATALIZUMAB
     Indication: Multiple sclerosis
     Route: 050
     Dates: start: 20221118

REACTIONS (4)
  - COVID-19 [Recovered/Resolved]
  - Respiratory syncytial virus infection [Recovered/Resolved]
  - Upper respiratory tract congestion [Unknown]
  - Chills [Unknown]

NARRATIVE: CASE EVENT DATE: 20221201
